FAERS Safety Report 7791616-3 (Version None)
Quarter: 2011Q3

REPORT INFORMATION
  Report Type: 
  Country: None (occurrence: None)
  Receive Date: 20110930
  Receipt Date: 20110930
  Transmission Date: 20111222
  Serious: Yes (Hospitalization)
  Sender: FDA-Public Use
  Company Number: None

PATIENT
  Sex: Male
  Weight: 77.7 kg

DRUGS (1)
  1. ACTOS 45 MG TAKEDA PHARMACEUTICALS DAILY ORALLY [Suspect]
     Indication: TYPE 2 DIABETES MELLITUS
     Dosage: 45 MG DAILY ORALLY
     Route: 048
     Dates: start: 20040501, end: 20110901

REACTIONS (1)
  - BLADDER CANCER [None]
